FAERS Safety Report 9681947 (Version 1)
Quarter: 2013Q4

REPORT INFORMATION
  Report Type: Spontaneous
  Country: DK (occurrence: DK)
  Receive Date: 20131111
  Receipt Date: 20131111
  Transmission Date: 20140711
  Serious: Yes (Other)
  Sender: FDA-Public Use
  Company Number: DK-SHIRE-ALL1-2013-07594

PATIENT
  Sex: Male

DRUGS (1)
  1. FOSRENOL [Suspect]
     Indication: HYPERPHOSPHATAEMIA
     Dosage: UNK, UNKNOWN
     Route: 048

REACTIONS (2)
  - Ileus [Unknown]
  - Wrong technique in drug usage process [Unknown]
